FAERS Safety Report 11175601 (Version 1)
Quarter: 2015Q2

REPORT INFORMATION
  Report Type: Spontaneous
  Country: US (occurrence: US)
  Receive Date: 20150609
  Receipt Date: 20150609
  Transmission Date: 20150821
  Serious: Yes (Other)
  Sender: FDA-Public Use
  Company Number: US-GLAXOSMITHKLINE-US2015079056

PATIENT
  Age: 69 Year
  Sex: Female

DRUGS (2)
  1. LEVOTHYROXINE [Concomitant]
     Active Substance: LEVOTHYROXINE
  2. ADVAIR DISKUS [Suspect]
     Active Substance: FLUTICASONE PROPIONATE\SALMETEROL XINAFOATE
     Indication: ASTHMA
     Dosage: 1 PUFF(S), QD
     Route: 055
     Dates: start: 2014

REACTIONS (6)
  - Cough [Recovered/Resolved]
  - Angina pectoris [Recovered/Resolved]
  - Device use error [Unknown]
  - Chest pain [Recovered/Resolved]
  - Expired product administered [Unknown]
  - Underdose [Unknown]

NARRATIVE: CASE EVENT DATE: 20150608
